FAERS Safety Report 14728628 (Version 1)
Quarter: 2018Q2

REPORT INFORMATION
  Report Type: Spontaneous
  Country: US (occurrence: US)
  Receive Date: 20180406
  Receipt Date: 20180406
  Transmission Date: 20180711
  Serious: Yes (Hospitalization)
  Sender: FDA-Public Use
  Company Number: US-FRESENIUS KABI-FK201804093

PATIENT
  Age: 60 Year
  Sex: Male

DRUGS (2)
  1. VANCOMYCIN (MANUFACTURER UNKNOWN) [Suspect]
     Active Substance: VANCOMYCIN
     Indication: PRODUCT USED FOR UNKNOWN INDICATION
     Route: 050
  2. VANCOMYCIN (MANUFACTURER UNKNOWN) [Suspect]
     Active Substance: VANCOMYCIN
     Indication: INVESTIGATION
     Route: 050

REACTIONS (4)
  - Product use issue [Recovered/Resolved with Sequelae]
  - Retinal vasculitis [Recovered/Resolved with Sequelae]
  - Retinal haemorrhage [Recovered/Resolved with Sequelae]
  - Blindness [Not Recovered/Not Resolved]
